FAERS Safety Report 8016176-3 (Version None)
Quarter: 2011Q4

REPORT INFORMATION
  Report Type: 
  Country: None (occurrence: None)
  Receive Date: 20111230
  Receipt Date: 20111220
  Transmission Date: 20120403
  Serious: Yes (Hospitalization)
  Sender: FDA-Public Use
  Company Number: US-ACTELION-A-US2011-58715

PATIENT

DRUGS (4)
  1. NITRO-DUR [Concomitant]
  2. TRACLEER [Suspect]
     Indication: PULMONARY ARTERIAL HYPERTENSION
     Dosage: UNK
     Route: 048
     Dates: start: 20050418
  3. CALCIUM CHANNEL BLOCKERS [Concomitant]
  4. OXYGEN [Concomitant]

REACTIONS (4)
  - ANGIOGRAM [None]
  - SYNCOPE [None]
  - DEVICE OCCLUSION [None]
  - LOSS OF CONSCIOUSNESS [None]
